FAERS Safety Report 4801526-9 (Version None)
Quarter: 2005Q4

REPORT INFORMATION
  Report Type: 
  Country: None (occurrence: None)
  Receive Date: 20051018
  Receipt Date: 20050816
  Transmission Date: 20060501
  Serious: Yes (Hospitalization)
  Sender: FDA-Public Use
  Company Number: US-AMGEN-US146657

PATIENT
  Sex: Female
  Weight: 54.9 kg

DRUGS (4)
  1. ENBREL [Suspect]
     Indication: RHEUMATOID ARTHRITIS
     Route: 058
     Dates: start: 19991005
  2. PREDNISONE [Concomitant]
     Dates: start: 19920312
  3. REMERON [Concomitant]
     Dates: start: 20050701
  4. INSULIN [Concomitant]

REACTIONS (5)
  - ANOREXIA [None]
  - BLOOD GLUCOSE DECREASED [None]
  - DYSGEUSIA [None]
  - SYNCOPE [None]
  - WEIGHT DECREASED [None]
